FAERS Safety Report 10260928 (Version 1)
Quarter: 2014Q2

REPORT INFORMATION
  Report Type: Other
  Country: GB (occurrence: GB)
  Receive Date: 20140626
  Receipt Date: 20140626
  Transmission Date: 20141212
  Serious: Yes (Disabling, Other)
  Sender: FDA-Public Use
  Company Number: GB-LUPIN PHARMACEUTICALS INC.-E2B_00001707

PATIENT
  Age: 61 Year
  Sex: Female
  Weight: 65.31 kg

DRUGS (1)
  1. SIMVASTATIN [Suspect]
     Indication: ANGIOPLASTY
     Route: 048
     Dates: start: 20120214, end: 20120614

REACTIONS (2)
  - Muscle injury [Not Recovered/Not Resolved]
  - Pain [Unknown]
